FAERS Safety Report 10700607 (Version 1)
Quarter: 2014Q4

REPORT INFORMATION
  Report Type: Spontaneous
  Country: US (occurrence: None)
  Receive Date: 20141224
  Receipt Date: 20141224
  Transmission Date: 20150529
  Serious: Yes (Other)
  Sender: FDA-Public Use
  Company Number: PHEH2014US017108

PATIENT
  Age: 40 Year

DRUGS (1)
  1. ZYKADIA [Suspect]
     Active Substance: CERITINIB
     Indication: NON-SMALL CELL LUNG CANCER
     Route: 048
     Dates: start: 20140807, end: 20140821

REACTIONS (3)
  - Metastases to liver [None]
  - Fatigue [None]
  - Liver function test abnormal [None]

NARRATIVE: CASE EVENT DATE: 20140807
